FAERS Safety Report 12423111 (Version 1)
Quarter: 2016Q2

REPORT INFORMATION
  Report Type: Spontaneous
  Country: US (occurrence: None)
  Receive Date: 20160531
  Receipt Date: 20160531
  Transmission Date: 20160815
  Serious: Yes (Death)
  Sender: FDA-Public Use
  Company Number: None

PATIENT
  Age: 48 Year
  Sex: Male

DRUGS (2)
  1. STATIN [Concomitant]
     Active Substance: UNSPECIFIED INGREDIENT
  2. GENERIC FOR KLONOPIN [Suspect]
     Active Substance: CLONAZEPAM
     Indication: ANXIETY
     Route: 048
     Dates: start: 20120604, end: 20120727

REACTIONS (5)
  - Abdominal pain [None]
  - Gun shot wound [None]
  - Pancreatitis chronic [None]
  - Completed suicide [None]
  - Intestinal ulcer [None]

NARRATIVE: CASE EVENT DATE: 20120727
